FAERS Safety Report 12590784 (Version 2)
Quarter: 2016Q3

REPORT INFORMATION
  Report Type: Spontaneous
  Country: JP (occurrence: JP)
  Receive Date: 20160726
  Receipt Date: 20160822
  Transmission Date: 20161109
  Serious: No
  Sender: FDA-Public Use
  Company Number: JP-ROCHE-1801181

PATIENT
  Age: 40 Year
  Sex: Female

DRUGS (2)
  1. ACTEMRA [Suspect]
     Active Substance: TOCILIZUMAB
     Indication: SCLERODERMA
     Route: 058
     Dates: start: 20160608, end: 2016
  2. ACTEMRA [Suspect]
     Active Substance: TOCILIZUMAB
     Indication: SCLERODERMA
     Route: 058
     Dates: start: 201607

REACTIONS (2)
  - No adverse event [Unknown]
  - Off label use [Unknown]
